FAERS Safety Report 24141367 (Version 1)
Quarter: 2024Q3

REPORT INFORMATION
  Report Type: Spontaneous
  Country: US (occurrence: None)
  Receive Date: 20240725
  Receipt Date: 20240725
  Transmission Date: 20241017
  Serious: Yes (Hospitalization)
  Sender: Public
  Company Number: None

PATIENT
  Age: 59 Year
  Sex: Female

DRUGS (3)
  1. WINREVAIR [Suspect]
     Active Substance: SOTATERCEPT-CSRK
     Indication: Pulmonary arterial hypertension
     Dosage: EVERY 3 WEEKS SQ??  INJECT 0.4ML UNDER THE SKIN FOR ONE DOSE, THEN INCREASE TO 0.9ML  FOR TARGET DOS
     Route: 058
     Dates: start: 202407
  2. AMBRISENTAN [Concomitant]
     Active Substance: AMBRISENTAN
  3. TREPROSTINIL [Concomitant]
     Active Substance: TREPROSTINIL

REACTIONS (1)
  - Lung transplant [None]

NARRATIVE: CASE EVENT DATE: 20240724
